FAERS Safety Report 5442575-X (Version None)
Quarter: 2007Q3

REPORT INFORMATION
  Report Type: 
  Country: None (occurrence: None)
  Receive Date: 20070904
  Receipt Date: 20070823
  Transmission Date: 20080115
  Serious: No
  Sender: FDA-Public Use
  Company Number: AU-ASTRAZENECA-2007AP04891

PATIENT
  Age: 45 Year
  Sex: Female

DRUGS (4)
  1. SYMBICORT [Suspect]
     Indication: ASTHMA
     Dates: start: 20070805
  2. SYMBICORT [Suspect]
     Indication: COUGH
     Dates: start: 20070805
  3. LEXAPRO [Concomitant]
     Indication: DEPRESSION
     Dates: end: 20070701
  4. PULMICORT [Concomitant]
     Dates: end: 20070301

REACTIONS (1)
  - MUSCLE SPASMS [None]
